FAERS Safety Report 8522086-5 (Version None)
Quarter: 2012Q3

REPORT INFORMATION
  Report Type: 
  Country: None (occurrence: None)
  Receive Date: 20120719
  Receipt Date: 20070226
  Transmission Date: 20120928
  Serious: Yes (Other)
  Sender: FDA-Public Use
  Company Number: CO-PFIZER INC-2012169634

PATIENT
  Age: 59 Year
  Sex: Female

DRUGS (12)
  1. METOPROLOL [Concomitant]
     Dosage: 50 MG, EVERY 12 HOURS
  2. LIPITOR [Suspect]
     Dosage: 10 MG, EVERY 24 HOURS
     Dates: start: 20070730
  3. QUINAPRIL AND HYDROCHLOROTHIAZIDE [Suspect]
     Indication: HYPERTENSION
     Dosage: [QUINAPRIL HCL 20 MG/ HYDROCHLOROTHIAZIDE 12.5 MG], EVERY 12 HOURS
  4. ASPIRIN [Concomitant]
     Dosage: 100 MG, EVERY 24 HOURS
  5. LIPITOR [Suspect]
     Indication: DYSLIPIDAEMIA
     Dosage: 10 MG, EVERY 12 HOURS
  6. NORVASC [Suspect]
     Indication: HYPERTENSION
     Dosage: 5 MG, EVERY 12 HOURS
  7. METOPROLOL [Concomitant]
     Dosage: 100 MG, EVERY 12 HOURS
  8. ENALAPRIL [Concomitant]
     Dosage: 20 MG, EVERY 24 HOURS
  9. HYDROCHLOROTHIAZIDE [Concomitant]
     Dosage: 25 MG, EVERY 24 HOURS
  10. LIPITOR [Suspect]
     Dosage: 20 MG, EVERY 12 HOURS
     Dates: start: 20090715
  11. NORVASC [Suspect]
     Dosage: 10 MG, EVERY 24 HOURS
     Dates: start: 20070730
  12. OLMESARTAN MEDOXOMIL AND HYDROCHLOROTHIZIDE [Suspect]
     Dosage: [OLMESARTAN MEDOXOMIL 20 MG/ HYDROCHLOROTHIAZIDE 12.5 MG], EVERY 24 HOURS

REACTIONS (8)
  - ACUTE MYOCARDIAL INFARCTION [None]
  - ANGINA UNSTABLE [None]
  - CHEST PAIN [None]
  - FATIGUE [None]
  - HYPERTENSIVE EMERGENCY [None]
  - COUGH [None]
  - ANGIOPATHY [None]
  - OEDEMA PERIPHERAL [None]
